FAERS Safety Report 17414423 (Version 2)
Quarter: 2020Q1

REPORT INFORMATION
  Report Type: Report from Study
  Country: None (occurrence: US)
  Receive Date: 20200213
  Receipt Date: 20200302
  Transmission Date: 20200409
  Serious: Yes (Other)
  Sender: FDA-Public Use
  Company Number: US-ABBVIE-20P-163-3273887-00

PATIENT
  Age: 70 Year
  Sex: Female
  Weight: 78.09 kg

DRUGS (1)
  1. RINVOQ [Suspect]
     Active Substance: UPADACITINIB
     Indication: RHEUMATOID ARTHRITIS
     Route: 048

REACTIONS (4)
  - Necrotising scleritis [Recovering/Resolving]
  - Ophthalmic herpes simplex [Recovering/Resolving]
  - Injury corneal [Recovering/Resolving]
  - Immunoglobulins increased [Recovering/Resolving]

NARRATIVE: CASE EVENT DATE: 202001
